FAERS Safety Report 17055785 (Version 2)
Quarter: 2019Q4

REPORT INFORMATION
  Report Type: Spontaneous
  Country: US (occurrence: US)
  Receive Date: 20191120
  Receipt Date: 20191122
  Transmission Date: 20200122
  Serious: No
  Sender: FDA-Public Use
  Company Number: US-UNITED THERAPEUTICS-UNT-2019-016128

PATIENT
  Sex: Male
  Weight: 81.63 kg

DRUGS (6)
  1. TYVASO [Suspect]
     Active Substance: TREPROSTINIL
     Dosage: UNK
  2. TYVASO [Suspect]
     Active Substance: TREPROSTINIL
     Dosage: 36 ?G, QID
  3. AMLODIPINE [Concomitant]
     Active Substance: AMLODIPINE BESYLATE
     Indication: PRODUCT USED FOR UNKNOWN INDICATION
     Dosage: UNK
     Route: 065
  4. TYVASO [Suspect]
     Active Substance: TREPROSTINIL
     Dosage: 54 ?G, UNK
     Dates: start: 201909
  5. TYVASO [Suspect]
     Active Substance: TREPROSTINIL
     Indication: PULMONARY ARTERIAL HYPERTENSION
     Dosage: 18-54 ?G, QID
     Dates: start: 20190829
  6. OPSUMIT [Concomitant]
     Active Substance: MACITENTAN
     Indication: PRODUCT USED FOR UNKNOWN INDICATION
     Dosage: UNK
     Route: 065

REACTIONS (7)
  - Balance disorder [Unknown]
  - Nasal congestion [Unknown]
  - Dizziness [Recovering/Resolving]
  - Sinusitis [Unknown]
  - Dysphonia [Unknown]
  - Cough [Not Recovered/Not Resolved]
  - Ear disorder [Unknown]

NARRATIVE: CASE EVENT DATE: 2019
